FAERS Safety Report 7632801-0 (Version None)
Quarter: 2011Q3

REPORT INFORMATION
  Report Type: 
  Country: None (occurrence: None)
  Receive Date: 20110725
  Receipt Date: 20110722
  Transmission Date: 20111222
  Serious: Yes (Death)
  Sender: FDA-Public Use
  Company Number: IN-SANOFI-AVENTIS-2011SA046893

PATIENT
  Age: 67 Year
  Sex: Male
  Weight: 54 kg

DRUGS (3)
  1. CABAZITAXEL [Suspect]
     Indication: PROSTATE CANCER
     Route: 042
     Dates: start: 20110713, end: 20110713
  2. PREDNISONE TAB [Suspect]
     Indication: PROSTATE CANCER
     Route: 048
  3. ALL OTHER THERAPEUTIC PRODUCTS [Concomitant]

REACTIONS (1)
  - CARDIO-RESPIRATORY ARREST [None]
